FAERS Safety Report 5625779-2 (Version None)
Quarter: 2008Q1

REPORT INFORMATION
  Report Type: 
  Country: None (occurrence: None)
  Receive Date: 20080213
  Receipt Date: 20080213
  Transmission Date: 20080703
  Serious: No
  Sender: FDA-Public Use
  Company Number: None

PATIENT
  Sex: Female

DRUGS (2)
  1. LAMICTAL [Suspect]
     Indication: AFFECTIVE DISORDER
     Dosage: 25MG X 2 WKS Q.D. P.O. 50MG X 1 DAY Q.D. P.O.
     Route: 048
     Dates: end: 20080128
  2. LAMICTAL [Suspect]
     Indication: AFFECTIVE DISORDER
     Dosage: 25MG X 2 WKS Q.D. P.O. 50MG X 1 DAY Q.D. P.O.
     Route: 048

REACTIONS (7)
  - ANGER [None]
  - FLIGHT OF IDEAS [None]
  - IMPATIENCE [None]
  - INITIAL INSOMNIA [None]
  - IRRITABILITY [None]
  - PSYCHOMOTOR HYPERACTIVITY [None]
  - SPEECH DISORDER [None]
